FAERS Safety Report 7009555-4 (Version None)
Quarter: 2010Q3

REPORT INFORMATION
  Report Type: 
  Country: None (occurrence: None)
  Receive Date: 20100903
  Receipt Date: 20090804
  Transmission Date: 20110219
  Serious: Yes (Other)
  Sender: FDA-Public Use
  Company Number: 2009226985

PATIENT
  Sex: Female

DRUGS (1)
  1. DISOPYRAMIDE PHOSPHATE [Suspect]

REACTIONS (1)
  - DRUG INEFFECTIVE [None]
